FAERS Safety Report 14127384 (Version 1)
Quarter: 2017Q4

REPORT INFORMATION
  Report Type: Spontaneous
  Country: US (occurrence: US)
  Receive Date: 20171026
  Receipt Date: 20171026
  Transmission Date: 20180321
  Serious: No
  Sender: FDA-Public Use
  Company Number: US-TEVA-741281ACC

PATIENT
  Sex: Male

DRUGS (4)
  1. CARBIDOPA AND LEVODOPA [Suspect]
     Active Substance: CARBIDOPA\LEVODOPA
     Indication: PARKINSON^S DISEASE
     Dosage: 700 MILLIGRAM DAILY; CARBIDOPA/LEVODOPA : 10/100 MG
     Dates: start: 2014
  2. SINEMET [Concomitant]
     Active Substance: CARBIDOPA\LEVODOPA
  3. ASPIRIN. [Concomitant]
     Active Substance: ASPIRIN
  4. PROSCAR [Concomitant]
     Active Substance: FINASTERIDE

REACTIONS (3)
  - Chromaturia [Not Recovered/Not Resolved]
  - Faeces discoloured [Not Recovered/Not Resolved]
  - Fatigue [Not Recovered/Not Resolved]

NARRATIVE: CASE EVENT DATE: 2016
